FAERS Safety Report 22942193 (Version 8)
Quarter: 2024Q4

REPORT INFORMATION
  Report Type: Report from Study
  Country: DE (occurrence: DE)
  Receive Date: 20230914
  Receipt Date: 20241025
  Transmission Date: 20250115
  Serious: Yes (Hospitalization)
  Sender: ROCHE
  Company Number: DE-002147023-NVSC2023DE096955

PATIENT
  Sex: Female

DRUGS (10)
  1. TOCILIZUMAB [Suspect]
     Active Substance: TOCILIZUMAB
     Indication: Product used for unknown indication
     Route: 058
     Dates: start: 201701, end: 201803
  2. TOCILIZUMAB [Suspect]
     Active Substance: TOCILIZUMAB
     Route: 058
     Dates: start: 201908, end: 202008
  3. RITUXIMAB [Suspect]
     Active Substance: RITUXIMAB
     Indication: Product used for unknown indication
     Route: 041
  4. RITUXIMAB [Suspect]
     Active Substance: RITUXIMAB
     Dosage: 1000 UNK
     Route: 041
     Dates: start: 202207
  5. RITUXIMAB [Suspect]
     Active Substance: RITUXIMAB
     Dosage: 1000 UNK
     Route: 041
     Dates: start: 202111
  6. RITUXIMAB [Suspect]
     Active Substance: RITUXIMAB
     Dosage: 1000 UNK
     Route: 041
     Dates: start: 202302
  7. CIMZIA [Suspect]
     Active Substance: CERTOLIZUMAB PEGOL
     Indication: Product used for unknown indication
     Dosage: 200 MG
     Route: 065
     Dates: start: 201908, end: 202008
  8. CIMZIA [Suspect]
     Active Substance: CERTOLIZUMAB PEGOL
     Dosage: 200 MG
     Route: 065
     Dates: start: 201803, end: 201908
  9. CIMZIA [Suspect]
     Active Substance: CERTOLIZUMAB PEGOL
     Dosage: 200 MG
     Route: 065
     Dates: start: 202011, end: 202110
  10. ORENCIA [Suspect]
     Active Substance: ABATACEPT
     Indication: Product used for unknown indication
     Dosage: 125 MG
     Route: 065
     Dates: start: 202008, end: 202010

REACTIONS (7)
  - Salpingitis [Recovered/Resolved]
  - Oophoritis [Recovered/Resolved]
  - Appendicitis [Recovered/Resolved]
  - Rash [Not Recovered/Not Resolved]
  - Vaginitis gardnerella [Not Recovered/Not Resolved]
  - Sinusitis [Recovered/Resolved]
  - Ear pain [Recovered/Resolved]

NARRATIVE: CASE EVENT DATE: 20220915
